FAERS Safety Report 5339574-5 (Version None)
Quarter: 2007Q2

REPORT INFORMATION
  Report Type: 
  Country: None (occurrence: None)
  Receive Date: 20070518
  Receipt Date: 20070507
  Transmission Date: 20071010
  Serious: Yes (Other)
  Sender: FDA-Public Use
  Company Number: 2007303084

PATIENT
  Age: 80 Year
  Sex: Male
  Weight: 87.1 kg

DRUGS (9)
  1. ROGAINE [Suspect]
     Indication: ALOPECIA
     Dosage: ONE ML TWICE DAILY (2 IN 1 D), TOPICAL
     Route: 061
     Dates: start: 20060306, end: 20061006
  2. LEVOTHYROXINE SODIUM [Concomitant]
  3. ASPIRIN [Concomitant]
  4. FELODIPINE [Concomitant]
  5. ATORVASTATIN CALCIUM [Concomitant]
  6. VITAMIN E [Concomitant]
  7. FOLIC ACID [Concomitant]
  8. MULTIVITAMIN [Concomitant]
  9. INSULIN (INSULIN) [Concomitant]

REACTIONS (14)
  - ACTINIC KERATOSIS [None]
  - ERYTHEMA [None]
  - HYPOAESTHESIA [None]
  - HYPOAESTHESIA FACIAL [None]
  - INSOMNIA [None]
  - MULTIPLE LENTIGINES SYNDROME [None]
  - PAIN OF SKIN [None]
  - PIGMENTATION DISORDER [None]
  - PRURITUS [None]
  - SCAB [None]
  - SKIN EXFOLIATION [None]
  - SKIN FIBROSIS [None]
  - SOLAR ELASTOSIS [None]
  - SQUAMOUS CELL CARCINOMA OF SKIN [None]
